FAERS Safety Report 6434492-3 (Version None)
Quarter: 2009Q4

REPORT INFORMATION
  Report Type: 
  Country: None (occurrence: None)
  Receive Date: 20091110
  Receipt Date: 20091028
  Transmission Date: 20100525
  Serious: Yes (Hospitalization)
  Sender: FDA-Public Use
  Company Number: US-PFIZER INC-2007018512

PATIENT
  Sex: Male
  Weight: 119 kg

DRUGS (7)
  1. SUNITINIB MALATE [Suspect]
     Indication: RENAL CELL CARCINOMA
     Dosage: 50 MG, 1X/DAY
     Route: 048
     Dates: start: 20051223
  2. CLONIDINE [Concomitant]
     Dosage: 0.2 MG, 2X/DAY
     Route: 048
     Dates: start: 20060831, end: 20070309
  3. AMBIEN [Concomitant]
     Dosage: 10 MG, 1X/DAY, HS
     Route: 048
     Dates: start: 20061115
  4. ALLOPURINOL [Concomitant]
     Dosage: 100 MG, 1X/DAY
     Route: 048
     Dates: start: 20060103
  5. NEXIUM [Concomitant]
     Dosage: 40 MG, 2X/DAY
     Route: 048
     Dates: start: 20060113, end: 20070309
  6. NORVASC [Concomitant]
     Dosage: 10 MG, 1X/DAY
     Route: 048
     Dates: start: 20060831
  7. ATENOLOL [Concomitant]
     Dosage: 25 MG, 1X/DAY, HS
     Route: 048
     Dates: start: 20070306, end: 20070309

REACTIONS (2)
  - BRADYCARDIA [None]
  - HYPOTHYROIDISM [None]
